FAERS Safety Report 9462911 (Version 1)
Quarter: 2013Q3

REPORT INFORMATION
  Report Type: Spontaneous
  Country: GB (occurrence: None)
  Receive Date: 20130814
  Receipt Date: 20130814
  Transmission Date: 20140515
  Serious: Yes (Disabling, Other)
  Sender: FDA-Public Use
  Company Number: GER/UKI/13/0033939

PATIENT
  Age: 36 Year
  Sex: Male
  Weight: 82.55 kg

DRUGS (2)
  1. CIPROFLOXACIN (CIPROFLOXACIN) [Suspect]
     Indication: EPIDIDYMITIS
     Dosage: 500 MG, 2 IN 1 D, ORAL
     Route: 048
     Dates: start: 20110116, end: 20130118
  2. PREGABALIN (PREGABALIN) [Concomitant]

REACTIONS (3)
  - Tendon discomfort [None]
  - Autonomic nervous system imbalance [None]
  - Complex regional pain syndrome [None]
